FAERS Safety Report 20374417 (Version 1)
Quarter: 2022Q1

REPORT INFORMATION
  Report Type: Report from Study
  Country: US (occurrence: US)
  Receive Date: 20220125
  Receipt Date: 20220125
  Transmission Date: 20220423
  Serious: Yes (Death)
  Sender: FDA-Public Use
  Company Number: US-BAUSCH-BL-2020-028973

PATIENT
  Age: 81 Year
  Sex: Female

DRUGS (2)
  1. XIFAXAN [Suspect]
     Active Substance: RIFAXIMIN
     Indication: Hepatic cirrhosis
     Dosage: STARTED APPROXIMATELY 2 YEARS PRIOR
     Route: 048
     Dates: start: 2019, end: 20200929
  2. XIFAXAN [Suspect]
     Active Substance: RIFAXIMIN
     Dosage: 90 DAYS SUPPLY
     Route: 048

REACTIONS (3)
  - Death [Fatal]
  - Therapy interrupted [Unknown]
  - Insurance issue [Unknown]

NARRATIVE: CASE EVENT DATE: 20200929
